FAERS Safety Report 17215102 (Version 1)
Quarter: 2019Q4

REPORT INFORMATION
  Report Type: Spontaneous
  Country: JP (occurrence: JP)
  Receive Date: 20191230
  Receipt Date: 20191230
  Transmission Date: 20200122
  Serious: Yes (Death)
  Sender: FDA-Public Use
  Company Number: JP-EISAI MEDICAL RESEARCH-EC-2019-067859

PATIENT
  Age: 70 Year
  Sex: Male

DRUGS (2)
  1. LENVIMA [Suspect]
     Active Substance: LENVATINIB
     Dosage: DOSAGE REDUCED (UNKNOWN DOSE AND FREQUENCY)
     Route: 048
  2. LENVIMA [Suspect]
     Active Substance: LENVATINIB
     Indication: FOLLICULAR THYROID CANCER
     Dosage: DOSAGE AND FREQUENCY UNKNOWN
     Route: 048

REACTIONS (1)
  - Proteinuria [Fatal]
